FAERS Safety Report 19750579 (Version 1)
Quarter: 2021Q3

REPORT INFORMATION
  Report Type: Spontaneous
  Country: US (occurrence: US)
  Receive Date: 20210826
  Receipt Date: 20210826
  Transmission Date: 20211014
  Serious: No
  Sender: FDA-Public Use
  Company Number: US-TARO-2021TAR00398

PATIENT

DRUGS (2)
  1. FLUOCINONIDE OINTMENT USP 0.05% [Suspect]
     Active Substance: FLUOCINONIDE
     Indication: TONGUE COATED
     Dosage: BID, A THIN COATING, INSIDE MOUTH ON THE TONGUE
     Route: 061
     Dates: start: 20210408, end: 20210411
  2. FLUOCINONIDE OINTMENT USP 0.05% [Suspect]
     Active Substance: FLUOCINONIDE
     Indication: ORAL INFECTION

REACTIONS (5)
  - Oral mucosal blistering [Recovering/Resolving]
  - Taste disorder [Recovering/Resolving]
  - Off label use [Unknown]
  - Retching [Recovering/Resolving]
  - Product use in unapproved indication [Unknown]

NARRATIVE: CASE EVENT DATE: 202104
